FAERS Safety Report 24825339 (Version 1)
Quarter: 2025Q1

REPORT INFORMATION
  Report Type: Report from Study
  Country: DE (occurrence: DE)
  Receive Date: 20250109
  Receipt Date: 20250109
  Transmission Date: 20250408
  Serious: Yes (Hospitalization)
  Sender: TEVA
  Company Number: DE-002147023-NVSC2023DE262193

PATIENT
  Sex: Male

DRUGS (12)
  1. METHOTREXATE [Suspect]
     Active Substance: METHOTREXATE
     Indication: Psoriatic arthropathy
     Dosage: 20 MG, QW
     Route: 058
     Dates: start: 20201125
  2. METHOTREXATE [Suspect]
     Active Substance: METHOTREXATE
     Indication: Psoriatic arthropathy
     Route: 058
     Dates: start: 20201125
  3. NAPROXEN [Suspect]
     Active Substance: NAPROXEN
     Indication: Psoriatic arthropathy
     Route: 065
     Dates: start: 20220904, end: 20220918
  4. TALTZ [Suspect]
     Active Substance: IXEKIZUMAB
     Indication: Psoriatic arthropathy
     Route: 065
     Dates: start: 20201202
  5. TALTZ [Suspect]
     Active Substance: IXEKIZUMAB
     Indication: Psoriatic arthropathy
     Route: 065
     Dates: start: 20201202, end: 20220829
  6. TALTZ [Suspect]
     Active Substance: IXEKIZUMAB
     Indication: Psoriatic arthropathy
     Route: 065
     Dates: start: 20201202
  7. COSENTYX [Suspect]
     Active Substance: SECUKINUMAB
     Indication: Psoriatic arthropathy
     Dosage: 300 MG, QMO
     Route: 065
     Dates: start: 20220909
  8. COSENTYX [Suspect]
     Active Substance: SECUKINUMAB
     Indication: Psoriatic arthropathy
     Dosage: 300 MG (QMO ROUTE OF ADMIN (FREE TEXT): INJECTION NOT OTHERWISE SPECIFIED)
     Route: 065
     Dates: start: 20220909
  9. ACEMETACIN [Suspect]
     Active Substance: ACEMETACIN
     Indication: Psoriatic arthropathy
     Route: 065
     Dates: start: 20220919
  10. ACEMETACIN [Suspect]
     Active Substance: ACEMETACIN
     Indication: Psoriatic arthropathy
     Route: 065
     Dates: start: 20201215
  11. ACEMETACIN [Suspect]
     Active Substance: ACEMETACIN
     Indication: Psoriatic arthropathy
     Route: 065
     Dates: start: 20201215, end: 20220903
  12. ACEMETACIN [Suspect]
     Active Substance: ACEMETACIN
     Indication: Psoriatic arthropathy
     Route: 065
     Dates: start: 20220919

REACTIONS (12)
  - Meniscus injury [Not Recovered/Not Resolved]
  - Rotator cuff syndrome [Unknown]
  - Cholelithiasis [Unknown]
  - Joint swelling [Unknown]
  - Duodenitis [Unknown]
  - Reactive gastropathy [Unknown]
  - Pancreatic steatosis [Unknown]
  - Nasopharyngitis [Unknown]
  - Gastrooesophageal reflux disease [Unknown]
  - Synovial cyst [Unknown]
  - Hepatic steatosis [Unknown]
  - Arthralgia [Unknown]

NARRATIVE: CASE EVENT DATE: 20230116
